FAERS Safety Report 9910139 (Version 2)
Quarter: 2014Q1

REPORT INFORMATION
  Report Type: Spontaneous
  Country: US (occurrence: US)
  Receive Date: 20140219
  Receipt Date: 20140219
  Transmission Date: 20141002
  Serious: No
  Sender: FDA-Public Use
  Company Number: US-GILEAD-2012-0056662

PATIENT
  Sex: Female

DRUGS (7)
  1. LETAIRIS [Suspect]
     Indication: PULMONARY HYPERTENSION
     Dosage: 10 MG, UNK
     Route: 048
     Dates: start: 20110920, end: 20120607
  2. LETAIRIS [Suspect]
     Indication: SCLERODERMA
  3. FOLIC ACID [Concomitant]
     Dosage: UNK
     Dates: start: 20120522
  4. LANSOPRAZOLE [Concomitant]
     Dosage: UNK
     Dates: start: 20120522
  5. METHOTREXATE [Concomitant]
     Dosage: UNK
     Dates: start: 20120522
  6. NEXIUM                             /01479302/ [Concomitant]
     Dosage: UNK
     Dates: start: 20120522
  7. PREDNISONE [Concomitant]
     Dosage: UNK
     Dates: start: 20110927

REACTIONS (3)
  - Skin ulcer [Recovered/Resolved]
  - Raynaud^s phenomenon [Recovered/Resolved]
  - Rash [Recovered/Resolved]
